FAERS Safety Report 23016118 (Version 2)
Quarter: 2023Q4

REPORT INFORMATION
  Report Type: Report from Study
  Country: US (occurrence: US)
  Receive Date: 20231002
  Receipt Date: 20231016
  Transmission Date: 20240110
  Serious: Yes (Hospitalization)
  Sender: FDA-Public Use
  Company Number: US-BAYER-2023A134336

PATIENT
  Age: 57 Year
  Sex: Female

DRUGS (3)
  1. STIVARGA [Suspect]
     Active Substance: REGORAFENIB
     Indication: Cholangiocarcinoma
     Dosage: 160 MG, QD (FOR 21 DAYS ON , 7 DAYS OFF)
     Route: 048
     Dates: start: 20230826
  2. STIVARGA [Suspect]
     Active Substance: REGORAFENIB
     Indication: Cholangiocarcinoma
     Dosage: 80 MG, QD
     Route: 048
  3. LYNPARZA [Concomitant]
     Active Substance: OLAPARIB
     Indication: Cholangiocarcinoma
     Dosage: 300 MG, BID
     Route: 048
     Dates: start: 20230613, end: 20230902

REACTIONS (7)
  - Oxygen saturation decreased [Recovering/Resolving]
  - White blood cell count decreased [Recovering/Resolving]
  - Pneumonia [Unknown]
  - Dyspepsia [Unknown]
  - Off label use [None]
  - Dehydration [None]
  - Rhinovirus infection [None]
